FAERS Safety Report 8561908-9 (Version None)
Quarter: 2012Q3

REPORT INFORMATION
  Report Type: 
  Country: None (occurrence: None)
  Receive Date: 20120802
  Receipt Date: 20120723
  Transmission Date: 20120928
  Serious: Yes (Hospitalization)
  Sender: FDA-Public Use
  Company Number: CA-FRI-1000037527

PATIENT
  Sex: Male

DRUGS (1)
  1. ROFLUMILAST [Suspect]
     Dosage: 500 MCG
     Route: 048

REACTIONS (4)
  - VISION BLURRED [None]
  - ELECTROLYTE IMBALANCE [None]
  - BLOOD SODIUM DECREASED [None]
  - HEADACHE [None]
